FAERS Safety Report 20313273 (Version 1)
Quarter: 2022Q1

REPORT INFORMATION
  Report Type: Spontaneous
  Country: US (occurrence: US)
  Receive Date: 20220109
  Receipt Date: 20220109
  Transmission Date: 20220423
  Serious: No
  Sender: FDA-Public Use
  Company Number: US-SA-SAC20211229000090

PATIENT
  Sex: Male

DRUGS (2)
  1. DUPIXENT [Suspect]
     Active Substance: DUPILUMAB
     Indication: Dermatitis atopic
     Dosage: 300 MG, QOW
     Route: 058
     Dates: start: 20211209
  2. ALLEGRA [LEVOCETIRIZINE DIHYDROCHLORIDE] [Concomitant]
     Indication: Rash

REACTIONS (7)
  - Pruritus [Recovering/Resolving]
  - Rash erythematous [Unknown]
  - Skin exfoliation [Unknown]
  - Dry skin [Unknown]
  - Skin tightness [Unknown]
  - Fatigue [Recovering/Resolving]
  - Nasopharyngitis [Recovering/Resolving]

NARRATIVE: CASE EVENT DATE: 20210101
